FAERS Safety Report 8208838-X (Version None)
Quarter: 2012Q1

REPORT INFORMATION
  Report Type: 
  Country: None (occurrence: None)
  Receive Date: 20120314
  Receipt Date: 20120308
  Transmission Date: 20120608
  Serious: Yes (Other)
  Sender: FDA-Public Use
  Company Number: JP-PFIZER INC-2012062430

PATIENT

DRUGS (2)
  1. GABAPENTIN [Suspect]
     Indication: FACIAL PAIN
     Dosage: UNK
  2. OPALMON [Suspect]
     Indication: PAIN IN EXTREMITY
     Dosage: UNK

REACTIONS (1)
  - HAEMORRHAGIC DIATHESIS [None]
